FAERS Safety Report 12557619 (Version 1)
Quarter: 2016Q3

REPORT INFORMATION
  Report Type: Report from Study
  Country: US (occurrence: US)
  Receive Date: 20160714
  Receipt Date: 20160714
  Transmission Date: 20161109
  Serious: No
  Sender: FDA-Public Use
  Company Number: US-JNJFOC-20140506424

PATIENT
  Age: 28 Year
  Sex: Male
  Weight: 67.7 kg

DRUGS (6)
  1. PLACEBO [Suspect]
     Active Substance: UNSPECIFIED INGREDIENT
     Indication: CROHN^S DISEASE
     Route: 058
     Dates: start: 20130820
  2. NORCO [Concomitant]
     Active Substance: ACETAMINOPHEN\HYDROCODONE BITARTRATE
     Indication: PAIN
     Route: 048
     Dates: start: 201311
  3. BLINDED; USTEKINUMA [Suspect]
     Active Substance: USTEKINUMAB
     Indication: CROHN^S DISEASE
     Route: 058
     Dates: start: 20130820
  4. TYLENOL [Concomitant]
     Active Substance: ACETAMINOPHEN
     Indication: PAIN
     Route: 048
     Dates: start: 2012
  5. BLINDED; USTEKINUMA [Suspect]
     Active Substance: USTEKINUMAB
     Route: 058
  6. LIALDA [Concomitant]
     Active Substance: MESALAMINE
     Indication: CROHN^S DISEASE
     Route: 048
     Dates: start: 201206

REACTIONS (1)
  - Transaminases increased [Not Recovered/Not Resolved]

NARRATIVE: CASE EVENT DATE: 20140507
